FAERS Safety Report 14414578 (Version 2)
Quarter: 2018Q4

REPORT INFORMATION
  Report Type: Report from Study
  Country: US (occurrence: US)
  Receive Date: 20180120
  Receipt Date: 20181212
  Transmission Date: 20190204
  Serious: No
  Sender: FDA-Public Use
  Company Number: PHEH2018US002031

PATIENT
  Age: 66 Year
  Sex: Female

DRUGS (2)
  1. COSENTYX [Suspect]
     Active Substance: SECUKINUMAB
     Dosage: 300 MG, QMO
     Route: 058
  2. COSENTYX [Suspect]
     Active Substance: SECUKINUMAB
     Indication: PSORIASIS
     Dosage: 300 MG, Q4W
     Route: 058
     Dates: start: 20170707

REACTIONS (2)
  - Diplopia [Not Recovered/Not Resolved]
  - Sinusitis [Recovering/Resolving]

NARRATIVE: CASE EVENT DATE: 20180103
